FAERS Safety Report 10555380 (Version 1)
Quarter: 2014Q4

REPORT INFORMATION
  Report Type: Spontaneous
  Country: ES (occurrence: ES)
  Receive Date: 20141030
  Receipt Date: 20141030
  Transmission Date: 20150529
  Serious: Yes (Other)
  Sender: FDA-Public Use
  Company Number: ES-WATSON-2014-23113

PATIENT
  Age: 28 Year
  Sex: Male

DRUGS (2)
  1. CLARITHROMYCIN. [Suspect]
     Active Substance: CLARITHROMYCIN
     Dosage: CUMULATIVE DOSE OF 500 MG
     Route: 048
  2. CLARITHROMYCIN. [Suspect]
     Active Substance: CLARITHROMYCIN
     Indication: PHARYNGITIS
     Dosage: 500 MG, SINGLE
     Route: 065

REACTIONS (7)
  - Anxiety [None]
  - Dizziness [None]
  - Depersonalisation [Recovered/Resolved]
  - Neurotoxicity [Recovered/Resolved]
  - Erythema [None]
  - Affect lability [None]
  - Erythema [Recovered/Resolved]
